FAERS Safety Report 9374224 (Version 1)
Quarter: 2013Q2

REPORT INFORMATION
  Report Type: Spontaneous
  Country: US (occurrence: US)
  Receive Date: 20130628
  Receipt Date: 20130628
  Transmission Date: 20140414
  Serious: No
  Sender: FDA-Public Use
  Company Number: US-PFIZER INC-2013191719

PATIENT
  Age: 69 Year
  Sex: Female
  Weight: 59.41 kg

DRUGS (2)
  1. PRISTIQ [Suspect]
     Indication: DEPRESSION
     Dosage: 25 MG, 1X/DAY (SPLIT HER 50 MG TABLET)
     Route: 048
     Dates: start: 20130626
  2. WELLBUTRIN SR [Concomitant]
     Dosage: 150 MG, UNK

REACTIONS (1)
  - Nausea [Unknown]
